FAERS Safety Report 21171517 (Version 3)
Quarter: 2022Q3

REPORT INFORMATION
  Report Type: Report from Study
  Country: US (occurrence: US)
  Receive Date: 20220804
  Receipt Date: 20220917
  Transmission Date: 20221027
  Serious: Yes (Other)
  Sender: FDA-Public Use
  Company Number: US-AUROBINDO-AUR-APL-2022-025575

PATIENT
  Sex: Male

DRUGS (11)
  1. BELINOSTAT [Suspect]
     Active Substance: BELINOSTAT
     Indication: Acute myeloid leukaemia
     Dosage: 10350 MILLIGRAM, CYCLICAL
     Route: 042
     Dates: start: 20220516
  2. BELINOSTAT [Suspect]
     Active Substance: BELINOSTAT
     Dosage: 10350 MILLIGRAM, CYCLICAL
     Route: 042
     Dates: start: 20220606
  3. BELINOSTAT [Suspect]
     Active Substance: BELINOSTAT
     Dosage: 2070 MILLIGRAM, CYCLICAL
     Route: 042
     Dates: start: 20220627
  4. BELINOSTAT [Suspect]
     Active Substance: BELINOSTAT
     Dosage: 8280 UNK
     Route: 042
     Dates: start: 20220718
  5. BELINOSTAT [Suspect]
     Active Substance: BELINOSTAT
     Dosage: 10350 MILLIGRAM
     Route: 065
     Dates: start: 20220808
  6. BELINOSTAT [Suspect]
     Active Substance: BELINOSTAT
     Dosage: 10350 MILLIGRAM/SQ. METER
     Route: 042
     Dates: start: 20220808
  7. PEVONEDISTAT HYDROCHLORIDE [Suspect]
     Active Substance: PEVONEDISTAT HYDROCHLORIDE
     Indication: Acute myeloid leukaemia
     Dosage: 312 MILLIGRAM, CYCLICAL
     Route: 042
     Dates: start: 20220516
  8. PEVONEDISTAT HYDROCHLORIDE [Suspect]
     Active Substance: PEVONEDISTAT HYDROCHLORIDE
     Dosage: 312 MILLIGRAM, CYCLICAL
     Route: 042
     Dates: start: 20220606
  9. PEVONEDISTAT HYDROCHLORIDE [Suspect]
     Active Substance: PEVONEDISTAT HYDROCHLORIDE
     Dosage: 104 MILLIGRAM, CYCLICAL
     Route: 042
     Dates: start: 20220627
  10. PEVONEDISTAT HYDROCHLORIDE [Suspect]
     Active Substance: PEVONEDISTAT HYDROCHLORIDE
     Dosage: 312 MILLIGRAM
     Route: 042
     Dates: start: 20220718
  11. PEVONEDISTAT HYDROCHLORIDE [Suspect]
     Active Substance: PEVONEDISTAT HYDROCHLORIDE
     Dosage: 312 MILLIGRAM
     Route: 042
     Dates: start: 20220808

REACTIONS (17)
  - Electrocardiogram QT prolonged [Unknown]
  - Decreased appetite [Unknown]
  - Nausea [Unknown]
  - Diarrhoea [Unknown]
  - Flushing [Unknown]
  - Insomnia [Unknown]
  - Vomiting [Unknown]
  - Dizziness [Unknown]
  - Oedema peripheral [Unknown]
  - Blood lactate dehydrogenase increased [Unknown]
  - Alanine aminotransferase increased [Unknown]
  - Aspartate aminotransferase increased [Unknown]
  - Sinus bradycardia [Unknown]
  - Blood bilirubin increased [Unknown]
  - Blood alkaline phosphatase increased [Unknown]
  - Dry skin [Unknown]
  - Arthralgia [Unknown]

NARRATIVE: CASE EVENT DATE: 20220516
